FAERS Safety Report 9536110 (Version 1)
Quarter: 2013Q3

REPORT INFORMATION
  Report Type: Spontaneous
  Country: CA (occurrence: CA)
  Receive Date: 20130919
  Receipt Date: 20130919
  Transmission Date: 20140515
  Serious: Yes (Life-Threatening, Disabling)
  Sender: FDA-Public Use
  Company Number: CA-009507513-1309CAN006063

PATIENT
  Age: 7 Year
  Sex: Male
  Weight: 32 kg

DRUGS (1)
  1. SINGULAIR [Suspect]
     Indication: PRODUCT USED FOR UNKNOWN INDICATION
     Dosage: 5 MG, UNK
     Route: 048

REACTIONS (12)
  - Aggression [Unknown]
  - Agitation [Unknown]
  - Depressed mood [Unknown]
  - Disturbance in attention [Unknown]
  - Fatigue [Unknown]
  - Fear [Unknown]
  - Frustration [Unknown]
  - Irritability [Unknown]
  - Negative thoughts [Unknown]
  - Pyrexia [Unknown]
  - Rash [Unknown]
  - Sleep disorder [Unknown]
